FAERS Safety Report 4480992-5 (Version None)
Quarter: 2004Q3

REPORT INFORMATION
  Report Type: 
  Country: None (occurrence: None)
  Receive Date: 20040923
  Receipt Date: 20040610
  Transmission Date: 20050211
  Serious: No
  Sender: FDA-Public Use
  Company Number: USA040669034

PATIENT
  Age: 76 Year
  Sex: Female
  Weight: 68 kg

DRUGS (13)
  1. FORTEO [Suspect]
     Indication: OSTEOPOROSIS
     Dosage: 20 UG DAY
  2. PREVACID [Concomitant]
  3. ELAVIL [Concomitant]
  4. ASPIRIN [Concomitant]
  5. COZAAR [Concomitant]
  6. ONE A  DAY VITAMIN [Concomitant]
  7. CALCIUM CITRATE WITH VITAMIN D [Concomitant]
  8. VITAMIN C [Concomitant]
  9. VITAMIN B COMPLEX CAP [Concomitant]
  10. PREMARIN [Concomitant]
  11. NORVASC [Concomitant]
  12. LOVASTATIN [Concomitant]
  13. MAGNESIUM [Concomitant]

REACTIONS (3)
  - HYPERTENSION [None]
  - JOINT SWELLING [None]
  - OEDEMA PERIPHERAL [None]
